FAERS Safety Report 12459716 (Version 1)
Quarter: 2016Q2

REPORT INFORMATION
  Report Type: Spontaneous
  Country: US (occurrence: US)
  Receive Date: 20160613
  Receipt Date: 20160613
  Transmission Date: 20160815
  Serious: No
  Sender: FDA-Public Use
  Company Number: US-BAYER-2016-109780

PATIENT
  Sex: Female

DRUGS (1)
  1. FINACEA [Suspect]
     Active Substance: AZELAIC ACID
     Dosage: UNK UNK, QD (AT BEDTIME)
     Route: 061
     Dates: start: 201604, end: 201604

REACTIONS (6)
  - Rash [None]
  - Paraesthesia [None]
  - Skin disorder [None]
  - Urticaria [None]
  - Erythema [None]
  - Product use issue [None]
